FAERS Safety Report 26217043 (Version 1)
Quarter: 2025Q4

REPORT INFORMATION
  Report Type: Spontaneous
  Country: QA (occurrence: QA)
  Receive Date: 20251231
  Receipt Date: 20251231
  Transmission Date: 20260119
  Serious: Yes (Death, Hospitalization, Other)
  Sender: MACLEODS
  Company Number: QA-MACLEODS PHARMA-MAC2025057436

PATIENT

DRUGS (6)
  1. LINEZOLID [Suspect]
     Active Substance: LINEZOLID
     Indication: Pseudomonas infection
     Route: 048
  2. LINEZOLID [Suspect]
     Active Substance: LINEZOLID
     Indication: Escherichia infection
  3. LINEZOLID [Suspect]
     Active Substance: LINEZOLID
     Indication: Enterococcal infection
  4. CEFEPIME [Concomitant]
     Active Substance: CEFEPIME HYDROCHLORIDE
     Dosage: EVERY SIX HOURS FOR 2 WEEKS
     Route: 042
  5. CEFEPIME [Concomitant]
     Active Substance: CEFEPIME HYDROCHLORIDE
  6. CEFEPIME [Concomitant]
     Active Substance: CEFEPIME HYDROCHLORIDE

REACTIONS (9)
  - Septic shock [Fatal]
  - Hypoglycaemia [Recovering/Resolving]
  - Pancreatitis [Recovering/Resolving]
  - Respiratory acidosis [Recovering/Resolving]
  - Condition aggravated [Unknown]
  - Chronic kidney disease [Unknown]
  - Nosocomial infection [Unknown]
  - Hypervolaemia [Unknown]
  - Lactic acidosis [Recovering/Resolving]
